FAERS Safety Report 4920265-7 (Version None)
Quarter: 2006Q1

REPORT INFORMATION
  Report Type: 
  Country: None (occurrence: None)
  Receive Date: 20060223
  Receipt Date: 20060220
  Transmission Date: 20060701
  Serious: Yes (Other)
  Sender: FDA-Public Use
  Company Number: US-GLAXOSMITHKLINE-A0594416A

PATIENT
  Age: 51 Year
  Sex: Male

DRUGS (13)
  1. AVANDAMET [Suspect]
     Dosage: 1TAB PER DAY
     Route: 048
     Dates: start: 20040101, end: 20060101
  2. AVANDIA [Suspect]
     Dosage: 4MG PER DAY
     Route: 048
     Dates: start: 20060104, end: 20060207
  3. ACTOS [Suspect]
     Route: 048
     Dates: start: 20060207
  4. GLIPIZIDE [Suspect]
     Route: 048
     Dates: start: 20060207
  5. METFORMIN HCL [Suspect]
     Dosage: 500MG PER DAY
     Route: 048
     Dates: start: 20060104
  6. PLETAL [Concomitant]
     Dates: start: 20050101
  7. CRESTOR [Concomitant]
     Dates: start: 20050101
  8. TOPROL-XL [Concomitant]
     Dates: start: 20050101
  9. PAROXETINE HCL [Concomitant]
     Dates: start: 20050101
  10. PROTONIX [Concomitant]
     Dates: start: 20050101
  11. PLAVIX [Concomitant]
     Dates: start: 20050101
  12. ASPIRIN [Concomitant]
     Dates: start: 20050101
  13. NITROQUICK [Concomitant]
     Dates: start: 20050101

REACTIONS (4)
  - DIABETES MELLITUS INADEQUATE CONTROL [None]
  - HYPERHIDROSIS [None]
  - MYOCARDIAL INFARCTION [None]
  - TREMOR [None]
